FAERS Safety Report 4565387-8 (Version None)
Quarter: 2005Q1

REPORT INFORMATION
  Report Type: 
  Country: None (occurrence: None)
  Receive Date: 20050126
  Receipt Date: 20030724
  Transmission Date: 20050727
  Serious: Yes (Hospitalization)
  Sender: FDA-Public Use
  Company Number: WAES 0304USA02713

PATIENT
  Age: 70 Year
  Sex: Female
  Weight: 67.586 kg

DRUGS (15)
  1. VIOXX [Suspect]
     Indication: NEOPLASM PROPHYLAXIS
     Dosage: 25 MG/DAILY/PO
     Route: 048
     Dates: start: 20010122, end: 20030526
  2. ACETAMINOPHEN [Suspect]
     Indication: PROPHYLAXIS
     Dosage: 325 MG/PRN/PO
     Route: 048
     Dates: start: 20001208, end: 20030526
  3. DULCOLAX [Concomitant]
  4. LIPITOR [Concomitant]
  5. NIFEDIPINE [Concomitant]
  6. PAXIL [Concomitant]
  7. PLAVIX [Concomitant]
  8. PREMARIN [Concomitant]
  9. PROCARDIA [Concomitant]
  10. TYLENOL [Concomitant]
  11. ASPIRIN [Concomitant]
  12. CYANOCOBALAMIN [Concomitant]
  13. METOPROLOL [Concomitant]
  14. PYRIDOXINE HCL [Concomitant]
  15. VITAMINS (UNSPECIFIED) [Concomitant]

REACTIONS (35)
  - ANAEMIA [None]
  - AORTIC DILATATION [None]
  - AORTIC DISSECTION [None]
  - ATELECTASIS [None]
  - BLOOD CREATININE INCREASED [None]
  - BLOOD PRESSURE DECREASED [None]
  - CHRONIC OBSTRUCTIVE PULMONARY DISEASE [None]
  - CORONARY ARTERY DISEASE [None]
  - CORONARY ARTERY STENOSIS [None]
  - COUGH [None]
  - DIAPHRAGMATIC DISORDER [None]
  - DIAPHRAGMATIC HERNIA [None]
  - DIAPHRAGMATIC PARALYSIS [None]
  - DUODENITIS [None]
  - DYSPNOEA [None]
  - ELECTROCARDIOGRAM QT SHORTENED [None]
  - EMPHYSEMA [None]
  - FEELING ABNORMAL [None]
  - GASTRITIS EROSIVE [None]
  - GASTROINTESTINAL DISORDER [None]
  - HAEMOTHORAX [None]
  - HYPERTENSION [None]
  - HYPOTENSION [None]
  - HYPOVOLAEMIA [None]
  - LUNG DISORDER [None]
  - MUCOSAL EROSION [None]
  - MUCOSAL INFLAMMATION [None]
  - MYOCARDIAL INFARCTION [None]
  - OESOPHAGEAL POLYP [None]
  - ORAL INTAKE REDUCED [None]
  - OSTEOARTHRITIS [None]
  - RENAL ARTERY STENOSIS [None]
  - SCAR [None]
  - TELANGIECTASIA [None]
  - VISUAL DISTURBANCE [None]
